FAERS Safety Report 23751877 (Version 1)
Quarter: 2024Q2

REPORT INFORMATION
  Report Type: Spontaneous
  Country: ES (occurrence: ES)
  Receive Date: 20240417
  Receipt Date: 20240417
  Transmission Date: 20240716
  Serious: Yes (Other)
  Sender: FDA-Public Use
  Company Number: None

PATIENT
  Age: 47 Year
  Sex: Male

DRUGS (9)
  1. ABIRATERONE [Suspect]
     Active Substance: ABIRATERONE
     Indication: Prostate cancer stage IV
     Dosage: 250 MILLIGRAM, OVER 2 DAYS IN ORDER TO ACHIEVE A TOTAL DOSE OF 1000MG
     Route: 048
     Dates: start: 2019
  2. ABIRATERONE [Suspect]
     Active Substance: ABIRATERONE
     Dosage: ORAL ABIRATERONE-ACETATE 1000MG WAS PERFORMED
     Route: 048
  3. ABIRATERONE [Suspect]
     Active Substance: ABIRATERONE
     Route: 048
     Dates: start: 2019
  4. ENZALUTAMIDE [Suspect]
     Active Substance: ENZALUTAMIDE
     Indication: Prostate cancer stage IV
     Dosage: UNK, QD
  5. ZYTIGA [Suspect]
     Active Substance: ABIRATERONE ACETATE
     Indication: Prostate cancer stage IV
     Dosage: ORAL ABIRATERONE-ACETATE 1000MG WAS PERFORMED
     Route: 048
     Dates: start: 2019
  6. ZYTIGA [Suspect]
     Active Substance: ABIRATERONE ACETATE
     Dosage: 250 MILLIGRAM, OVER 2 DAYS IN ORDER TO ACHIEVE A TOTAL DOSE OF 1000MG
     Route: 048
     Dates: start: 2019
  7. EBASTINE [Concomitant]
     Active Substance: EBASTINE
     Indication: Premedication
     Dosage: 20 MILLIGRAM, OD
  8. PREDNISONE [Concomitant]
     Active Substance: PREDNISONE
     Indication: Premedication
     Dosage: 5 MILLIGRAM, BID
  9. PREDNISONE [Concomitant]
     Active Substance: PREDNISONE
     Dosage: 15 MILLIGRAM, BID

REACTIONS (5)
  - Drug eruption [Unknown]
  - Type IV hypersensitivity reaction [Recovering/Resolving]
  - Rash morbilliform [Unknown]
  - Eyelid oedema [Unknown]
  - Prurigo [Unknown]
